FAERS Safety Report 18420005 (Version 2)
Quarter: 2020Q4

REPORT INFORMATION
  Report Type: Spontaneous
  Country: JP (occurrence: JP)
  Receive Date: 20201023
  Receipt Date: 20201112
  Transmission Date: 20210114
  Serious: Yes (Death, Life-Threatening, Hospitalization)
  Sender: FDA-Public Use
  Company Number: JP-PFIZER INC-2020408061

PATIENT
  Age: 76 Year
  Sex: Female
  Weight: 28.9 kg

DRUGS (1)
  1. VFEND [Suspect]
     Active Substance: VORICONAZOLE
     Indication: BRONCHOPULMONARY ASPERGILLOSIS
     Dosage: 100 MG, 2X/DAY
     Route: 048
     Dates: start: 20200826

REACTIONS (2)
  - Hypoglycaemia [Fatal]
  - Drug ineffective [Fatal]

NARRATIVE: CASE EVENT DATE: 2020
